FAERS Safety Report 6869824-5 (Version None)
Quarter: 2010Q3

REPORT INFORMATION
  Report Type: 
  Country: None (occurrence: None)
  Receive Date: 20100722
  Receipt Date: 20080829
  Transmission Date: 20110219
  Serious: No
  Sender: FDA-Public Use
  Company Number: US-PFIZER INC-2008073650

PATIENT
  Sex: Female
  Weight: 72.57 kg

DRUGS (5)
  1. CHANTIX [Suspect]
     Indication: SMOKING CESSATION THERAPY
     Dates: start: 20080822, end: 20080823
  2. ANTIHYPERTENSIVES [Concomitant]
  3. DRUG, UNSPECIFIED [Concomitant]
  4. ESTROGENS [Concomitant]
  5. VITAMINS [Concomitant]

REACTIONS (2)
  - INSOMNIA [None]
  - URTICARIA [None]
